FAERS Safety Report 5940969-7 (Version None)
Quarter: 2008Q4

REPORT INFORMATION
  Report Type: 
  Country: None (occurrence: None)
  Receive Date: 20081104
  Receipt Date: 20081027
  Transmission Date: 20090506
  Serious: Yes (Other)
  Sender: FDA-Public Use
  Company Number: PHHY2008JP24955

PATIENT
  Age: 77 Year
  Sex: Female

DRUGS (1)
  1. GLEEVEC [Suspect]
     Indication: GASTROINTESTINAL STROMAL TUMOUR
     Route: 048

REACTIONS (6)
  - BONE MARROW FAILURE [None]
  - DUODENECTOMY [None]
  - GASTROINTESTINAL STROMAL TUMOUR [None]
  - GENERALISED OEDEMA [None]
  - INTESTINAL ANASTOMOSIS [None]
  - PANCREATIC OPERATION [None]
